FAERS Safety Report 10123374 (Version 2)
Quarter: 2015Q1

REPORT INFORMATION
  Report Type: Other
  Country: US (occurrence: US)
  Receive Date: 20140427
  Receipt Date: 20150213
  Transmission Date: 20150720
  Serious: Yes (Death, Hospitalization, Other)
  Sender: FDA-Public Use
  Company Number: US-GSKPPD-2014GSK026652

PATIENT
  Age: 51 Year
  Sex: Female

DRUGS (7)
  1. VASOTEC [Concomitant]
     Active Substance: ENALAPRIL MALEATE
  2. DIOVAN [Concomitant]
     Active Substance: VALSARTAN
  3. PLAVIX [Concomitant]
     Active Substance: CLOPIDOGREL BISULFATE
  4. COREG [Concomitant]
     Active Substance: CARVEDILOL
  5. IMDUR [Concomitant]
     Active Substance: ISOSORBIDE MONONITRATE
  6. AVANDIA [Suspect]
     Active Substance: ROSIGLITAZONE MALEATE
     Indication: DIABETES MELLITUS
     Dosage: AVANDIA WAS NOT LISTED AMONG THE PATIENTS RECORDS REVIEWED.
     Route: 048
  7. LASIX [Concomitant]
     Active Substance: FUROSEMIDE

REACTIONS (3)
  - Arrhythmia [Fatal]
  - Myocardial infarction [Recovered/Resolved]
  - Cardiomyopathy [Unknown]

NARRATIVE: CASE EVENT DATE: 20010122
